FAERS Safety Report 4506234-X (Version None)
Quarter: 2004Q4

REPORT INFORMATION
  Report Type: 
  Country: None (occurrence: None)
  Receive Date: 20041119
  Receipt Date: 20041110
  Transmission Date: 20050328
  Serious: Yes (Life-Threatening, Hospitalization, Disabling)
  Sender: FDA-Public Use
  Company Number: US-MERCK-0411USA01993

PATIENT
  Age: 57 Year
  Sex: Female

DRUGS (6)
  1. VIOXX [Suspect]
     Indication: ARTHRITIS
     Route: 048
     Dates: start: 20020101, end: 20041001
  2. NEXIUM [Concomitant]
     Route: 065
  3. FUROSEMIDE [Concomitant]
     Route: 065
  4. GLUCOTROL [Concomitant]
     Route: 065
  5. TIZANIDINE HYDROCHLORIDE [Concomitant]
     Route: 065
  6. FOSAMAX [Concomitant]
     Route: 065

REACTIONS (2)
  - CHEST PAIN [None]
  - RENAL PAIN [None]
